FAERS Safety Report 9437379 (Version 2)
Quarter: 2013Q4

REPORT INFORMATION
  Report Type: Spontaneous
  Country: GB (occurrence: GB)
  Receive Date: 20130802
  Receipt Date: 20131115
  Transmission Date: 20140711
  Serious: Yes (Death, Congenital Anomaly)
  Sender: FDA-Public Use
  Company Number: GB-TEVA-420720ISR

PATIENT
  Sex: 0

DRUGS (2)
  1. GABAPENTIN [Suspect]
     Indication: NEURALGIA
     Dosage: 600 MILLIGRAM DAILY;
     Route: 064
     Dates: start: 200905
  2. REBIF [Suspect]
     Indication: MULTIPLE SCLEROSIS
     Route: 064
     Dates: start: 201205, end: 201303

REACTIONS (3)
  - Abortion induced [Fatal]
  - Ventricular septal defect [Not Recovered/Not Resolved]
  - Foetal cardiac disorder [Not Recovered/Not Resolved]
